FAERS Safety Report 7834232-7 (Version None)
Quarter: 2011Q4

REPORT INFORMATION
  Report Type: 
  Country: None (occurrence: None)
  Receive Date: 20111024
  Receipt Date: 20111019
  Transmission Date: 20120403
  Serious: Yes (Other)
  Sender: FDA-Public Use
  Company Number: PHHY2011JP66876

PATIENT
  Age: 77 Year
  Sex: Male

DRUGS (10)
  1. PREDNISOLONE [Concomitant]
     Dosage: UNK
     Route: 048
     Dates: start: 20110721
  2. ZOMETA [Suspect]
     Indication: METASTASES TO BONE
     Dosage: 4 MG, PER ADMINISTRATION
     Route: 041
     Dates: start: 20110518, end: 20110518
  3. TAXOTERE [Concomitant]
     Dosage: UNK
     Route: 042
     Dates: start: 20101005, end: 20110810
  4. URSO 250 [Concomitant]
     Route: 048
  5. CALBLOCK [Concomitant]
     Route: 048
  6. ASPIRIN [Concomitant]
     Route: 065
  7. OLMESARTAN MEDOXOMIL [Concomitant]
     Route: 065
  8. ESTRACYT [Concomitant]
     Route: 048
  9. METFORMIN HCL [Concomitant]
     Route: 048
  10. ACTOS [Concomitant]
     Route: 048

REACTIONS (2)
  - RASH GENERALISED [None]
  - EOSINOPHIL COUNT INCREASED [None]
